FAERS Safety Report 4551906-4 (Version None)
Quarter: 2005Q1

REPORT INFORMATION
  Report Type: 
  Country: None (occurrence: None)
  Receive Date: 20050110
  Receipt Date: 20041229
  Transmission Date: 20050727
  Serious: Yes (Hospitalization, Other)
  Sender: FDA-Public Use
  Company Number: HQWYE284429DEC04

PATIENT
  Age: 31 Year
  Sex: Female

DRUGS (3)
  1. ADVIL [Suspect]
     Indication: INFLUENZA
     Dosage: ORAL
     Route: 048
     Dates: start: 20040920, end: 20040924
  2. LOCABIOTAL ( FUSAFUNGINE, ) [Suspect]
     Indication: INFLUENZA
     Dates: start: 20040920, end: 20040924
  3. TOPLEXIL (OXOMEMAZINE, ) [Suspect]
     Indication: INFLUENZA
     Dates: start: 20040920, end: 20040924

REACTIONS (1)
  - RENAL FAILURE ACUTE [None]
